FAERS Safety Report 7779139-9 (Version None)
Quarter: 2011Q3

REPORT INFORMATION
  Report Type: 
  Country: None (occurrence: None)
  Receive Date: 20110926
  Receipt Date: 20110310
  Transmission Date: 20111222
  Serious: Yes (Hospitalization, Other)
  Sender: FDA-Public Use
  Company Number: PHHY2011FR37785

PATIENT
  Sex: Female
  Weight: 61 kg

DRUGS (7)
  1. VALSARTAN AND HYDROCHLOROTHIAZIDE [Suspect]
     Dosage: UNK
     Dates: start: 20060101, end: 20100710
  2. VOGALENE [Suspect]
     Dosage: UNK
     Dates: end: 20100710
  3. GLUCOPHAGE [Concomitant]
     Dosage: UNK
  4. VALDOXAN [Suspect]
     Dosage: 25 MG
     Route: 048
     Dates: start: 20100701, end: 20100710
  5. TENORDATE [Concomitant]
     Dosage: UNK
  6. PRAVASTATIN [Concomitant]
     Dosage: UNK
  7. AMARYL [Concomitant]
     Dosage: UNK

REACTIONS (5)
  - HYPONATRAEMIA [None]
  - CONFUSIONAL STATE [None]
  - MYOCLONUS [None]
  - INAPPROPRIATE ANTIDIURETIC HORMONE SECRETION [None]
  - HYPOKALAEMIA [None]
